FAERS Safety Report 23718034 (Version 1)
Quarter: 2024Q2

REPORT INFORMATION
  Report Type: Spontaneous
  Country: IT (occurrence: IT)
  Receive Date: 20240408
  Receipt Date: 20240408
  Transmission Date: 20240715
  Serious: Yes (Life-Threatening, Hospitalization, Other)
  Sender: FDA-Public Use
  Company Number: None

PATIENT
  Age: 42 Year
  Sex: Female

DRUGS (6)
  1. XANAX [Suspect]
     Active Substance: ALPRAZOLAM
     Indication: Product used for unknown indication
     Dosage: 0.50 MG / INTAKE OF 15 TABLETS
     Route: 048
     Dates: start: 20240214, end: 20240214
  2. XANAX [Suspect]
     Active Substance: ALPRAZOLAM
     Indication: Product used for unknown indication
     Dosage: 0.75 MG/ML / INTAKE OF 1 VIAL
     Route: 048
  3. IBUPROFEN [Suspect]
     Active Substance: IBUPROFEN
     Indication: Product used for unknown indication
     Dosage: 600 MG / INTAKE OF 30 SACHETS
     Route: 048
     Dates: start: 20240214, end: 20240214
  4. LIDOCAINE\NEOMYCIN\POLYMYXIN B [Suspect]
     Active Substance: LIDOCAINE\NEOMYCIN\POLYMYXIN B
     Indication: Product used for unknown indication
     Dosage: 1 MIU + 0.375 G + 4 G 25 ML/ INTAKE OF 1 VIAL
     Route: 048
     Dates: start: 20240214, end: 20240214
  5. PAROXETINE [Suspect]
     Active Substance: PAROXETINE
     Indication: Product used for unknown indication
     Dosage: 33.1 MG/ML / INTAKE OF 1 VIAL
     Route: 048
     Dates: start: 20240214, end: 20240214
  6. TACHIPIRINA [Suspect]
     Active Substance: ACETAMINOPHEN
     Indication: Product used for unknown indication
     Dosage: 500 MG / INTAKE OF 20 TABLETS
     Route: 048
     Dates: start: 20240214, end: 20240214

REACTIONS (7)
  - Hyperlactacidaemia [Unknown]
  - Toxicity to various agents [Unknown]
  - Tachycardia [Unknown]
  - Myoclonus [Unknown]
  - Coma [Unknown]
  - Mydriasis [Unknown]
  - Drug abuse [Unknown]

NARRATIVE: CASE EVENT DATE: 20240214
